FAERS Safety Report 5900921-4 (Version None)
Quarter: 2008Q3

REPORT INFORMATION
  Report Type: 
  Country: None (occurrence: None)
  Receive Date: 20080929
  Receipt Date: 20080918
  Transmission Date: 20090109
  Serious: Yes (Other)
  Sender: FDA-Public Use
  Company Number: PHHY2008BR22068

PATIENT
  Sex: Male

DRUGS (5)
  1. TOFRANIL [Suspect]
     Indication: ANXIETY
     Dosage: 1 CAPSULE OF 75 MG DURING DAY AND 1 CAPSULE OF 150 MG AT NIGHT.
     Route: 048
  2. TOFRANIL [Suspect]
     Indication: DEPRESSION
  3. NEOZINE [Concomitant]
     Indication: SEDATIVE THERAPY
     Dosage: UNK
     Route: 048
     Dates: start: 20060101
  4. PHENOBARBITAL TAB [Concomitant]
     Indication: TREMOR
     Dosage: UNK
     Route: 048
     Dates: start: 19880101
  5. RIVOTRIL [Concomitant]
     Indication: ANXIETY
     Dosage: UNK
     Route: 048
     Dates: start: 19840101

REACTIONS (6)
  - ERECTILE DYSFUNCTION [None]
  - HYPOACUSIS [None]
  - LOSS OF LIBIDO [None]
  - NERVOUSNESS [None]
  - OSTEOARTHRITIS [None]
  - WEIGHT INCREASED [None]
